FAERS Safety Report 8357691 (Version 2)
Quarter: 2013Q4

REPORT INFORMATION
  Report Type: Report from Study
  Country: DE (occurrence: DE)
  Receive Date: 20120127
  Receipt Date: 20131209
  Transmission Date: 20140711
  Serious: Yes (Death)
  Sender: FDA-Public Use
  Company Number: DE-SHIRE-CQT2-2008-00042

PATIENT
  Age: 80 Year
  Sex: Male

DRUGS (7)
  1. 422 (ANAGRELIDE) [Suspect]
     Indication: ESSENTIAL THROMBOCYTHAEMIA
     Dosage: 1 MG, AS REQ^D DAILY
     Route: 048
     Dates: start: 20050527, end: 20061121
  2. 422 (ANAGRELIDE) [Suspect]
     Dosage: 1 MG DAILY FOR TWO DAYS, THEN 1.5 MG FOR ONE DAY, REPEATING
     Route: 048
     Dates: start: 20061122
  3. HYDROXYUREA [Suspect]
     Indication: ESSENTIAL THROMBOCYTHAEMIA
     Dosage: 1500 MG DAILY, AS REQ^D DAILY
     Route: 048
     Dates: start: 199605, end: 19971110
  4. HYDROXYUREA [Suspect]
     Dosage: 1000 MG DAILY, AS REQ^D DAILY
     Route: 048
     Dates: start: 20020220, end: 20040518
  5. INTERFERON [Suspect]
     Indication: ESSENTIAL THROMBOCYTHAEMIA
     Dosage: 3 MIU, 1X/WEEK
     Route: 058
     Dates: start: 19980116, end: 20040510
  6. NOVODIGAL                          /00017701/ [Concomitant]
     Indication: ATRIAL FIBRILLATION
     Dosage: .2 MG, 1X/DAY:QD
     Route: 048
     Dates: start: 2005
  7. RISPERDAL [Concomitant]
     Indication: PSYCHOTIC DISORDER
     Dosage: 100 MG, 1X/DAY:QD
     Route: 048
     Dates: start: 200801

REACTIONS (1)
  - Death [Fatal]
